FAERS Safety Report 17660478 (Version 17)
Quarter: 2022Q3

REPORT INFORMATION
  Report Type: Spontaneous
  Country: US (occurrence: US)
  Receive Date: 20200413
  Receipt Date: 20220930
  Transmission Date: 20221027
  Serious: Yes (Other)
  Sender: FDA-Public Use
  Company Number: US-PFIZER INC-2019194959

PATIENT
  Age: 74 Year
  Sex: Female

DRUGS (3)
  1. PROTONIX [Suspect]
     Active Substance: PANTOPRAZOLE SODIUM
     Indication: Gastrointestinal haemorrhage
     Dosage: 40 MG, DAILY
     Dates: end: 2020
  2. PROTONIX [Suspect]
     Active Substance: PANTOPRAZOLE SODIUM
     Indication: Gastrointestinal disorder
  3. PROTONIX [Suspect]
     Active Substance: PANTOPRAZOLE SODIUM
     Indication: Nausea

REACTIONS (11)
  - Cardiac dysfunction [Unknown]
  - Pulmonary function test decreased [Unknown]
  - COVID-19 [Unknown]
  - Off label use [Unknown]
  - Memory impairment [Unknown]
  - Dyspnoea [Unknown]
  - Pain [Unknown]
  - Feeding disorder [Unknown]
  - Insomnia [Unknown]
  - General physical health deterioration [Unknown]
  - Bradykinesia [Unknown]
